FAERS Safety Report 6774456-3 (Version None)
Quarter: 2010Q2

REPORT INFORMATION
  Report Type: 
  Country: None (occurrence: None)
  Receive Date: 20100617
  Receipt Date: 20100604
  Transmission Date: 20101027
  Serious: Yes (Hospitalization, Other)
  Sender: FDA-Public Use
  Company Number: PHHY2010US38395

PATIENT
  Sex: Female
  Weight: 91.6 kg

DRUGS (6)
  1. EXJADE [Suspect]
     Dosage: 1625 MG, QD
     Route: 048
  2. ZOLOFT [Concomitant]
     Indication: DEPRESSION
     Dosage: 100 MG DAILY
     Route: 048
  3. METHOTREXATE [Concomitant]
     Indication: LARGE GRANULAR LYMPHOCYTOSIS
     Dosage: 17.5 MG, QW
     Route: 048
     Dates: start: 20091101
  4. PREDNISONE [Concomitant]
     Indication: LARGE GRANULAR LYMPHOCYTOSIS
     Dosage: 60 MG DAILY TAPERING
     Route: 048
     Dates: start: 20100113
  5. NEUPOGEN [Concomitant]
     Indication: LARGE GRANULAR LYMPHOCYTOSIS
     Dosage: 480 MCG 5 DAYS WEEKLY
     Route: 058
     Dates: start: 19960101
  6. COUMADIN [Concomitant]
     Indication: CEREBROVASCULAR ACCIDENT
     Dosage: 4 MG, QD
     Route: 048
     Dates: start: 19990101

REACTIONS (6)
  - ANAEMIA [None]
  - DIARRHOEA [None]
  - HAEMATOCRIT DECREASED [None]
  - HAEMOGLOBIN DECREASED [None]
  - PLATELET COUNT DECREASED [None]
  - WHITE BLOOD CELL COUNT DECREASED [None]
